FAERS Safety Report 7701425-9 (Version None)
Quarter: 2011Q3

REPORT INFORMATION
  Report Type: 
  Country: None (occurrence: None)
  Receive Date: 20110822
  Receipt Date: 20110803
  Transmission Date: 20111222
  Serious: No
  Sender: FDA-Public Use
  Company Number: US-B.I. PHARMACEUTICALS,INC./RIDGEFIELD-2011-BP-17564BP

PATIENT
  Sex: Female
  Weight: 95.25 kg

DRUGS (11)
  1. ELAVIL [Concomitant]
     Indication: NEURALGIA
     Dosage: 25 MG
     Route: 048
     Dates: start: 20110401
  2. XALATAN [Concomitant]
     Indication: GLAUCOMA
     Dates: start: 20000101
  3. GLIPIZIDE [Concomitant]
     Indication: DIABETES MELLITUS
     Dosage: 10 MG
     Route: 048
     Dates: start: 20050101
  4. DIGOXIN [Concomitant]
     Indication: ATRIAL FIBRILLATION
     Dosage: 12.5 MG
     Route: 048
     Dates: start: 20000101
  5. METHYLSCOPOLAMINE [Concomitant]
     Indication: GLAUCOMA
     Dosage: 50 MG
     Dates: start: 20000101
  6. DIOVAN HCT [Concomitant]
     Indication: HYPERTENSION
     Route: 048
     Dates: start: 20000101
  7. COMBIGAN [Concomitant]
     Indication: GLAUCOMA
     Dosage: 30 MG
     Dates: start: 20000101
  8. CYMBALTA [Concomitant]
     Dosage: 30 MG
     Route: 048
  9. PRADAXA [Suspect]
     Indication: ATRIAL FIBRILLATION
     Dosage: 300 MG
     Route: 048
     Dates: start: 20110101, end: 20110726
  10. NEXIUM [Concomitant]
     Indication: OESOPHAGEAL PAIN
     Dosage: 40 MG
     Route: 048
     Dates: start: 20110601
  11. COUMADIN [Concomitant]
     Dosage: 2.5 MG
     Route: 048

REACTIONS (4)
  - OESOPHAGEAL PAIN [None]
  - THROAT IRRITATION [None]
  - ABDOMINAL DISCOMFORT [None]
  - SENSATION OF FOREIGN BODY [None]
